FAERS Safety Report 6878656-3 (Version None)
Quarter: 2010Q3

REPORT INFORMATION
  Report Type: 
  Country: None (occurrence: None)
  Receive Date: 20100728
  Receipt Date: 20100726
  Transmission Date: 20110219
  Serious: Yes (Congenital Anomaly)
  Sender: FDA-Public Use
  Company Number: A0872411A

PATIENT
  Sex: Male

DRUGS (7)
  1. COMBIVIR [Suspect]
     Indication: HIV INFECTION
     Dates: start: 20030903
  2. VIRAMUNE [Suspect]
     Indication: HIV INFECTION
     Dates: start: 20030903
  3. VIDEX [Suspect]
     Indication: HIV INFECTION
     Dates: start: 20030822, end: 20030902
  4. CEPHALEXIN [Concomitant]
  5. FERROUS SULFATE TAB [Concomitant]
  6. FOLIC ACID [Concomitant]
  7. NITROFURANTOIN [Concomitant]

REACTIONS (2)
  - APLASIA CUTIS CONGENITA [None]
  - DRUG EXPOSURE DURING PREGNANCY [None]
